FAERS Safety Report 15470659 (Version 2)
Quarter: 2018Q4

REPORT INFORMATION
  Report Type: Spontaneous
  Country: US (occurrence: US)
  Receive Date: 20181005
  Receipt Date: 20181108
  Transmission Date: 20190205
  Serious: No
  Sender: FDA-Public Use
  Company Number: US-PFIZER INC-2018397350

PATIENT
  Sex: Female

DRUGS (1)
  1. XELJANZ [Suspect]
     Active Substance: TOFACITINIB CITRATE
     Dosage: UNK

REACTIONS (6)
  - Weight increased [Unknown]
  - Joint swelling [Unknown]
  - Back pain [Unknown]
  - Drug hypersensitivity [Unknown]
  - Rash [Unknown]
  - Peripheral swelling [Unknown]
